FAERS Safety Report 4565145-4 (Version None)
Quarter: 2005Q1

REPORT INFORMATION
  Report Type: 
  Country: None (occurrence: None)
  Receive Date: 20050126
  Receipt Date: 20050113
  Transmission Date: 20050727
  Serious: Yes (Hospitalization, Other)
  Sender: FDA-Public Use
  Company Number: 2005011557

PATIENT
  Age: 24 Year
  Sex: Female

DRUGS (4)
  1. ZELDOX [Suspect]
     Indication: PSYCHOTIC DISORDER
     Dosage: 4800 MG (80 MG, 2 IN 1 D), ORAL
     Route: 048
     Dates: start: 20040923, end: 20050108
  2. ZELDOX [Suspect]
     Indication: SCHIZOPHRENIA
     Dosage: 4800 MG (80 MG, 2 IN 1 D), ORAL
     Route: 048
     Dates: start: 20040923, end: 20050108
  3. VALPROATE SODIUM [Concomitant]
  4. QUETIAPINE FUMARATE [Concomitant]

REACTIONS (7)
  - EXTRAPYRAMIDAL DISORDER [None]
  - HYPOKINESIA [None]
  - MUSCLE RIGIDITY [None]
  - OVERDOSE [None]
  - RESTLESSNESS [None]
  - SUICIDE ATTEMPT [None]
  - TREMOR [None]
